FAERS Safety Report 13146457 (Version 1)
Quarter: 2017Q1

REPORT INFORMATION
  Report Type: Spontaneous
  Country: US (occurrence: US)
  Receive Date: 20170124
  Receipt Date: 20170124
  Transmission Date: 20170428
  Serious: Yes (Other)
  Sender: FDA-Public Use
  Company Number: US-VISTAPHARM, INC.-1062352

PATIENT
  Sex: Female
  Weight: 52.16 kg

DRUGS (6)
  1. METHADONE HYDROCHLORIDE. [Suspect]
     Active Substance: METHADONE HYDROCHLORIDE
     Route: 048
     Dates: end: 20150331
  2. SOMA [Suspect]
     Active Substance: CARISOPRODOL
     Route: 048
     Dates: start: 20160108
  3. QUETIAPINE. [Suspect]
     Active Substance: QUETIAPINE
     Route: 048
     Dates: start: 20160123, end: 20160124
  4. ABILIFY [Suspect]
     Active Substance: ARIPIPRAZOLE
     Route: 048
     Dates: start: 20160130, end: 20160130
  5. ALPRAZOLAM. [Suspect]
     Active Substance: ALPRAZOLAM
  6. OXYCODONE [Concomitant]
     Active Substance: OXYCODONE
     Route: 048
     Dates: start: 20160113

REACTIONS (6)
  - Nasal obstruction [Unknown]
  - Abasia [Unknown]
  - Dysphonia [Unknown]
  - Potentiating drug interaction [Unknown]
  - Tremor [Unknown]
  - Dyskinesia [Unknown]
